FAERS Safety Report 12984687 (Version 3)
Quarter: 2017Q1

REPORT INFORMATION
  Report Type: Spontaneous
  Country: US (occurrence: US)
  Receive Date: 20161129
  Receipt Date: 20170120
  Transmission Date: 20170428
  Serious: Yes (Other)
  Sender: FDA-Public Use
  Company Number: US-GILEAD-2016-0244851

PATIENT
  Age: 66 Year
  Sex: Female

DRUGS (16)
  1. POLYETHYLENE GLYCOL [Concomitant]
     Active Substance: POLYETHYLENE GLYCOLS
  2. ASA [Concomitant]
     Active Substance: ASPIRIN
  3. LABETALOL [Concomitant]
     Active Substance: LABETALOL\LABETALOL HYDROCHLORIDE
  4. COZAAR [Concomitant]
     Active Substance: LOSARTAN POTASSIUM
  5. LORATADINE. [Concomitant]
     Active Substance: LORATADINE
  6. ARICEPT [Concomitant]
     Active Substance: DONEPEZIL HYDROCHLORIDE
  7. FUROSEMIDE. [Concomitant]
     Active Substance: FUROSEMIDE
  8. ODEFSEY [Suspect]
     Active Substance: EMTRICITABINE\RILPIVIRINE HYDROCHLORIDE\TENOFOVIR ALAFENAMIDE FUMARATE
     Indication: HIV INFECTION
     Dosage: UNK
     Route: 048
     Dates: start: 20160627
  9. QUETIAPINE. [Concomitant]
     Active Substance: QUETIAPINE
  10. MELATONIN [Concomitant]
     Active Substance: MELATONIN
  11. COLACE [Concomitant]
     Active Substance: DOCUSATE SODIUM
  12. CLONIDINE. [Concomitant]
     Active Substance: CLONIDINE
  13. LISPRO INSULIN [Concomitant]
     Active Substance: INSULIN LISPRO
  14. ATORVASTATIN [Concomitant]
     Active Substance: ATORVASTATIN
  15. FERROUS FUMARATE [Concomitant]
     Active Substance: FERROUS FUMARATE
  16. GLIPIZIDE. [Concomitant]
     Active Substance: GLIPIZIDE

REACTIONS (1)
  - Blood HIV RNA increased [Unknown]

NARRATIVE: CASE EVENT DATE: 20161010
